FAERS Safety Report 13483338 (Version 2)
Quarter: 2017Q2

REPORT INFORMATION
  Report Type: Spontaneous
  Country: CA (occurrence: CA)
  Receive Date: 20170424
  Receipt Date: 20170619
  Transmission Date: 20170830
  Serious: Yes (Other)
  Sender: FDA-Public Use
  Company Number: CA-JUBILANT PHARMA LTD-2017CA000167

PATIENT
  Sex: Male

DRUGS (2)
  1. TETRAKIS (2-METHOXYISOBUTYL ISONITRILE) COPPER (I) TETRAFLUOROBORATE [Suspect]
     Active Substance: TETRAKIS(2-METHOXYISOBUTYLISOCYANIDE)COPPER(I) TETRAFLUOROBORATE
     Indication: CARDIAC STRESS TEST
     Dosage: UNK
     Route: 065
  2. TECHNETIUM TC 99M [Suspect]
     Active Substance: TECHNETIUM TC-99M
     Indication: CARDIAC STRESS TEST
     Dosage: 29 MCI, SINGLE DOSE
     Route: 065

REACTIONS (3)
  - Urticaria [Not Recovered/Not Resolved]
  - Throat irritation [Recovered/Resolved]
  - Pharyngeal oedema [Recovered/Resolved]

NARRATIVE: CASE EVENT DATE: 20160527
